FAERS Safety Report 6981681-5 (Version None)
Quarter: 2010Q3

REPORT INFORMATION
  Report Type: 
  Country: None (occurrence: None)
  Receive Date: 20100914
  Receipt Date: 20091001
  Transmission Date: 20110219
  Serious: No
  Sender: FDA-Public Use
  Company Number: US-PFIZER INC-2009253978

PATIENT
  Sex: Female
  Weight: 64.4 kg

DRUGS (5)
  1. LYRICA [Suspect]
     Indication: FIBROMYALGIA
     Dosage: 75 MG, 1X/DAY
     Dates: start: 20090806
  2. SIMVASTATIN [Concomitant]
     Indication: BLOOD CHOLESTEROL INCREASED
     Dosage: UNK
  3. CHONDROITIN [Concomitant]
     Dosage: UNK
  4. GLUCOSAMINE [Concomitant]
     Dosage: UNK
  5. CALCIUM [Concomitant]
     Dosage: UNK

REACTIONS (5)
  - DISTURBANCE IN ATTENTION [None]
  - HYPOAESTHESIA [None]
  - MEMORY IMPAIRMENT [None]
  - SOMNOLENCE [None]
  - WEIGHT INCREASED [None]
